FAERS Safety Report 4963839-X (Version None)
Quarter: 2006Q1

REPORT INFORMATION
  Report Type: 
  Country: None (occurrence: None)
  Receive Date: 20060201
  Receipt Date: 20051121
  Transmission Date: 20060701
  Serious: No
  Sender: FDA-Public Use
  Company Number: 2005PV004639

PATIENT
  Age: 52 Year
  Sex: Male
  Weight: 142.8831 kg

DRUGS (3)
  1. BYETTA [Suspect]
     Indication: DRUG USE FOR UNKNOWN INDICATION
     Dosage: 5 MCG; BID; SC
     Route: 058
     Dates: start: 20051118
  2. AMARYL [Concomitant]
  3. AVANDAMENT [Concomitant]

REACTIONS (1)
  - BLOOD GLUCOSE INCREASED [None]
